FAERS Safety Report 9208946 (Version 1)
Quarter: 2013Q2

REPORT INFORMATION
  Report Type: Spontaneous
  Country: MX (occurrence: MX)
  Receive Date: 20130404
  Receipt Date: 20130404
  Transmission Date: 20140414
  Serious: Yes (Other)
  Sender: FDA-Public Use
  Company Number: PHHY2012MX128202

PATIENT
  Age: 72 Year
  Sex: Female

DRUGS (6)
  1. GLIVEC [Suspect]
     Indication: RED BLOOD CELL COUNT DECREASED
     Dosage: 400 MG, QD
     Dates: start: 201202
  2. ALDACTONE [Concomitant]
     Dosage: UNK, DAILY
     Dates: start: 201209
  3. METOCLOPRAMIDE [Concomitant]
     Dosage: UNK, EVERY 8 HOURS
     Dates: start: 201202
  4. BLOPRESS PLUS [Concomitant]
     Dosage: 16 MG, QD
  5. DURATEX [Concomitant]
     Indication: HYPERCHLORHYDRIA
     Dosage: UNK, DAILY
     Dates: start: 201209
  6. GLUCOVANCE [Concomitant]
     Indication: DIABETES MELLITUS
     Dosage: UNK, DAILY
     Dates: start: 201202

REACTIONS (4)
  - Heart valve incompetence [Not Recovered/Not Resolved]
  - Blood calcium decreased [Not Recovered/Not Resolved]
  - Muscle spasms [Not Recovered/Not Resolved]
  - Blood magnesium decreased [Not Recovered/Not Resolved]
